FAERS Safety Report 11544479 (Version 1)
Quarter: 2015Q3

REPORT INFORMATION
  Report Type: Spontaneous
  Country: US (occurrence: US)
  Receive Date: 20150924
  Receipt Date: 20150924
  Transmission Date: 20151125
  Serious: Yes (Other)
  Sender: FDA-Public Use
  Company Number: US-SUN PHARMACEUTICAL INDUSTRIES LTD-13SUNGE05P

PATIENT
  Age: 13 Year
  Sex: Female

DRUGS (4)
  1. BEVACIZUMAB [Suspect]
     Active Substance: BEVACIZUMAB
     Indication: EWING^S SARCOMA
     Dosage: 5 MG/KG ON DAY 1 AND 15 OF CYCLE; CYCLES WERE REPEATED EVERY 21 DAYS; TOTAL OF 6 CYCLE
     Route: 042
  2. DOCETAXEL. [Suspect]
     Active Substance: DOCETAXEL
     Indication: EWING^S SARCOMA
     Dosage: 100 MG/M^2 ON DAY 8 OVER 1 HOUR; CYCLES WERE REPEATED EVERY 21 DAYS; TOTAL OF 6 CYCLE
     Route: 042
  3. DIPHENHYDRAMINE. [Concomitant]
     Active Substance: DIPHENHYDRAMINE
     Indication: PROPHYLAXIS
     Dosage: UNK
     Route: 065
  4. GEMCITABINE [Suspect]
     Active Substance: GEMCITABINE\GEMCITABINE HYDROCHLORIDE
     Indication: EWING^S SARCOMA
     Dosage: 900 MG/M^2 ON DAY 1 AND 8 OF CYCLE; CYCLES WERE REPEATED EVERY 21 DAYS; TOTAL OF 6 CYCLE
     Route: 042

REACTIONS (2)
  - Epistaxis [Unknown]
  - Bone marrow failure [Unknown]
